FAERS Safety Report 10519172 (Version 2)
Quarter: 2014Q4

REPORT INFORMATION
  Report Type: Spontaneous
  Country: US (occurrence: US)
  Receive Date: 20141015
  Receipt Date: 20141015
  Transmission Date: 20150528
  Serious: No
  Sender: FDA-Public Use
  Company Number: US-GLAXOSMITHKLINE-A1080367A

PATIENT
  Age: 83 Year
  Sex: Female

DRUGS (4)
  1. LISINOPRIL. [Concomitant]
     Active Substance: LISINOPRIL
  2. ATENOLOL TABLETS [Interacting]
     Active Substance: ATENOLOL
     Indication: MYOCARDIAL INFARCTION
     Route: 048
     Dates: start: 1999
  3. ATORVASTATIN [Concomitant]
     Active Substance: ATORVASTATIN
  4. ANORO ELLIPTA [Suspect]
     Active Substance: UMECLIDINIUM BROMIDE\VILANTEROL TRIFENATATE
     Indication: CHRONIC OBSTRUCTIVE PULMONARY DISEASE
     Route: 055
     Dates: start: 20140620

REACTIONS (1)
  - Labelled drug-drug interaction medication error [Unknown]

NARRATIVE: CASE EVENT DATE: 20140620
